FAERS Safety Report 7734494-0 (Version None)
Quarter: 2011Q3

REPORT INFORMATION
  Report Type: 
  Country: None (occurrence: None)
  Receive Date: 20110907
  Receipt Date: 20110830
  Transmission Date: 20111222
  Serious: Yes (Other)
  Sender: FDA-Public Use
  Company Number: US-GLAXOSMITHKLINE-A0890707A

PATIENT
  Age: 81 Year
  Sex: Female

DRUGS (2)
  1. AVANDAMET [Suspect]
     Indication: DIABETES MELLITUS
     Route: 048
     Dates: start: 20040124, end: 20040301
  2. AVANDIA [Suspect]
     Indication: DIABETES MELLITUS
     Dosage: 2MG TWICE PER DAY
     Route: 048
     Dates: start: 20030321, end: 20070705

REACTIONS (7)
  - MUSCULOSKELETAL PAIN [None]
  - SILENT MYOCARDIAL INFARCTION [None]
  - SLEEP APNOEA SYNDROME [None]
  - INTERMITTENT CLAUDICATION [None]
  - DYSPNOEA [None]
  - DIZZINESS EXERTIONAL [None]
  - PAIN IN EXTREMITY [None]
